FAERS Safety Report 13677390 (Version 1)
Quarter: 2017Q2

REPORT INFORMATION
  Report Type: Spontaneous
  Country: US (occurrence: US)
  Receive Date: 20170621
  Receipt Date: 20170621
  Transmission Date: 20170830
  Serious: No
  Sender: FDA-Public Use
  Company Number: None

PATIENT
  Age: 43 Year
  Sex: Male

DRUGS (1)
  1. BUPRENORPHINE TRANSDERMAL PATCH [Suspect]
     Active Substance: BUPRENORPHINE
     Dosage: ?          OTHER FREQUENCY:WEEKLY;?
     Route: 062

REACTIONS (2)
  - Application site vesicles [None]
  - Application site rash [None]

NARRATIVE: CASE EVENT DATE: 20170612
